FAERS Safety Report 4723280-1 (Version None)
Quarter: 2005Q3

REPORT INFORMATION
  Report Type: 
  Country: None (occurrence: None)
  Receive Date: 20050719
  Receipt Date: 20041005
  Transmission Date: 20060218
  Serious: Yes (Other)
  Sender: FDA-Public Use
  Company Number: 205811

PATIENT
  Age: 46 Year
  Sex: Female
  Weight: 87.0906 kg

DRUGS (7)
  1. AVONEX [Suspect]
     Indication: MULTIPLE SCLEROSIS
     Dosage: 30 UG; QW; IM
     Route: 030
     Dates: start: 20000901, end: 20040101
  2. AVONEX [Suspect]
     Indication: MULTIPLE SCLEROSIS
     Dosage: 30 UG; QW; IM
     Route: 030
     Dates: start: 20040801
  3. ASPIRIN [Concomitant]
  4. PAXIL [Concomitant]
  5. AMITRIPTYLINE HCL [Concomitant]
  6. DETROL LA [Concomitant]
  7. AMANTADINE [Concomitant]

REACTIONS (2)
  - CONVULSION [None]
  - MUSCLE SPASMS [None]
